FAERS Safety Report 9174949 (Version 4)
Quarter: 2013Q2

REPORT INFORMATION
  Report Type: Spontaneous
  Country: US (occurrence: US)
  Receive Date: 20130320
  Receipt Date: 20130618
  Transmission Date: 20140414
  Serious: Yes (Hospitalization)
  Sender: FDA-Public Use
  Company Number: US-GLAXOSMITHKLINE-A1015491A

PATIENT
  Age: 21 Year
  Sex: Male

DRUGS (3)
  1. LAMICTAL XR [Suspect]
     Indication: EPILEPSY
     Dosage: 100MG TWICE PER DAY
     Route: 048
     Dates: start: 20121219
  2. TOPAMAX [Concomitant]
  3. XANAX [Concomitant]

REACTIONS (18)
  - Convulsion [Recovering/Resolving]
  - Depression [Recovering/Resolving]
  - Insomnia [Recovering/Resolving]
  - Joint injury [Recovering/Resolving]
  - Communication disorder [Recovering/Resolving]
  - Aphasia [Recovering/Resolving]
  - Feeling abnormal [Recovering/Resolving]
  - Amnesia [Recovering/Resolving]
  - Nervousness [Recovering/Resolving]
  - Anxiety [Recovering/Resolving]
  - Disturbance in attention [Recovering/Resolving]
  - Aura [Recovering/Resolving]
  - Headache [Recovering/Resolving]
  - Loss of consciousness [Unknown]
  - Disorientation [Recovering/Resolving]
  - Somnolence [Recovering/Resolving]
  - Urinary incontinence [Recovering/Resolving]
  - Faecal incontinence [Recovering/Resolving]
